FAERS Safety Report 6678300-4 (Version None)
Quarter: 2010Q2

REPORT INFORMATION
  Report Type: 
  Country: None (occurrence: None)
  Receive Date: 20100413
  Receipt Date: 20100331
  Transmission Date: 20101027
  Serious: Yes (Death, Hospitalization)
  Sender: FDA-Public Use
  Company Number: US-RANBAXY-2009US-29805

PATIENT

DRUGS (3)
  1. VERAPAMIL [Suspect]
     Indication: ATRIAL FIBRILLATION
     Dosage: 120 MG, ONE DOSE
     Route: 065
     Dates: start: 20070612, end: 20070612
  2. SELO-ZOK [Suspect]
     Indication: ATRIAL FIBRILLATION
     Dosage: UNK
     Route: 065
     Dates: start: 20070611, end: 20070612
  3. SELO-ZOK [Suspect]
     Dosage: UNK
     Dates: start: 20070612

REACTIONS (11)
  - BRADYCARDIA [None]
  - CARDIAC ARREST [None]
  - CIRCULATORY COLLAPSE [None]
  - COLD SWEAT [None]
  - COR PULMONALE [None]
  - DILATATION VENTRICULAR [None]
  - DRUG INTERACTION [None]
  - HYPERTROPHY [None]
  - OFF LABEL USE [None]
  - RESPIRATORY DISORDER [None]
  - TRICUSPID VALVE INCOMPETENCE [None]
